FAERS Safety Report 9900341 (Version 1)
Quarter: 2014Q1

REPORT INFORMATION
  Report Type: Spontaneous
  Country: US (occurrence: US)
  Receive Date: 20140216
  Receipt Date: 20140216
  Transmission Date: 20141002
  Serious: No
  Sender: FDA-Public Use
  Company Number: US-009507513-1402USA006170

PATIENT
  Age: 66 Year
  Sex: Female

DRUGS (2)
  1. JANUVIA [Suspect]
     Indication: DIABETES MELLITUS MANAGEMENT
     Dosage: 100 MG, QD
  2. GLYBURIDE [Concomitant]
     Indication: DIABETES MELLITUS MANAGEMENT
     Dosage: 10 MG, QD

REACTIONS (1)
  - Drug ineffective [Unknown]
